FAERS Safety Report 8117704-X (Version None)
Quarter: 2012Q1

REPORT INFORMATION
  Report Type: 
  Country: None (occurrence: None)
  Receive Date: 20120203
  Receipt Date: 20120203
  Transmission Date: 20120608
  Serious: Yes (Hospitalization)
  Sender: FDA-Public Use
  Company Number: None

PATIENT
  Age: 86 Year
  Sex: Male
  Weight: 83.2 kg

DRUGS (2)
  1. DEXAMETHASONE [Suspect]
     Indication: AMYLOIDOSIS
     Dosage: 40 MG QWEEK PO
     Route: 048
     Dates: start: 20110621, end: 20111019
  2. BORTEZOMIB [Suspect]
     Dosage: 2.6 MG QWEEK IV
     Route: 042
     Dates: start: 20110621, end: 20120105

REACTIONS (3)
  - DYSPNOEA EXERTIONAL [None]
  - FATIGUE [None]
  - OEDEMA PERIPHERAL [None]
